FAERS Safety Report 15254922 (Version 1)
Quarter: 2018Q4

REPORT INFORMATION
  Report Type: Spontaneous
  Country: US (occurrence: US)
  Receive Date: 20180808
  Receipt Date: 20180808
  Transmission Date: 20190204
  Serious: No
  Sender: FDA-Public Use
  Company Number: US-MYLANLABS-2018M1058779

PATIENT
  Sex: Male

DRUGS (1)
  1. IPRATROPIUM/SALBUTAMOL [Suspect]
     Active Substance: ALBUTEROL\IPRATROPIUM BROMIDE
     Indication: CHRONIC OBSTRUCTIVE PULMONARY DISEASE
     Dosage: 0.5MG/3 MG PER 3 ML VIA A ^COMPRESSOR^ ONCE DURING THE DAY
     Route: 055

REACTIONS (2)
  - Cough [Recovered/Resolved]
  - Fatigue [Recovered/Resolved]
